FAERS Safety Report 18544364 (Version 1)
Quarter: 2020Q4

REPORT INFORMATION
  Report Type: Spontaneous
  Country: US (occurrence: US)
  Receive Date: 20201124
  Receipt Date: 20201124
  Transmission Date: 20210114
  Serious: Yes (Hospitalization)
  Sender: FDA-Public Use
  Company Number: None

PATIENT
  Age: 63 Year
  Sex: Female
  Weight: 151.5 kg

DRUGS (3)
  1. TYLENOL 650 MG ONCE [Concomitant]
     Dates: start: 20201120, end: 20201120
  2. BAMLANIVIMAB. [Suspect]
     Active Substance: BAMLANIVIMAB
     Indication: COVID-19
     Dosage: ?          OTHER FREQUENCY:ONCE;?
     Route: 041
  3. ONDANSETRON [Concomitant]
     Active Substance: ONDANSETRON
     Dates: start: 20201120, end: 20201120

REACTIONS (7)
  - COVID-19 pneumonia [None]
  - Tachypnoea [None]
  - Dyspnoea exertional [None]
  - Dyspnoea [None]
  - Blood pressure systolic increased [None]
  - Blood pressure diastolic decreased [None]
  - Heart rate decreased [None]

NARRATIVE: CASE EVENT DATE: 20201120
